FAERS Safety Report 17003828 (Version 1)
Quarter: 2019Q4

REPORT INFORMATION
  Report Type: Report from Study
  Country: BR (occurrence: BR)
  Receive Date: 20191107
  Receipt Date: 20191107
  Transmission Date: 20200122
  Serious: Yes (Other)
  Sender: FDA-Public Use
  Company Number: BR-EMD SERONO-9126732

PATIENT
  Age: 48 Year
  Sex: Female

DRUGS (1)
  1. REBIF [Suspect]
     Active Substance: INTERFERON BETA-1A
     Indication: MULTIPLE SCLEROSIS
     Route: 058
     Dates: start: 20100106

REACTIONS (4)
  - Fatigue [Recovering/Resolving]
  - Back pain [Unknown]
  - Dislocation of vertebra [Unknown]
  - Libido decreased [Recovering/Resolving]

NARRATIVE: CASE EVENT DATE: 201907
